FAERS Safety Report 4318453-6 (Version None)
Quarter: 2004Q1

REPORT INFORMATION
  Report Type: 
  Country: None (occurrence: None)
  Receive Date: 20040315
  Receipt Date: 20040305
  Transmission Date: 20041129
  Serious: Yes (Hospitalization)
  Sender: FDA-Public Use
  Company Number: 2004015725

PATIENT
  Age: 68 Year
  Sex: Female

DRUGS (1)
  1. AMLODPINE (AMLODIPINE) [Suspect]
     Indication: HYPERTENSION
     Dosage: 10 MG (DAILY), ORAL
     Route: 048
     Dates: start: 19970901

REACTIONS (1)
  - CATARACT [None]
